FAERS Safety Report 9213154 (Version 1)
Quarter: 2013Q2

REPORT INFORMATION
  Report Type: Report from Study
  Country: US (occurrence: US)
  Receive Date: 20130405
  Receipt Date: 20130405
  Transmission Date: 20140414
  Serious: Yes (Other)
  Sender: FDA-Public Use
  Company Number: US-JNJFOC-20130318913

PATIENT
  Sex: Female

DRUGS (1)
  1. DOXORUBICIN HYDROCHLORIDE (DOXIL) [Suspect]
     Indication: ENDOMETRIAL CANCER
     Route: 042
     Dates: start: 20130227, end: 2013

REACTIONS (3)
  - Ascites [Not Recovered/Not Resolved]
  - Malaise [Unknown]
  - Off label use [Unknown]
